FAERS Safety Report 9333229 (Version 2)
Quarter: 2013Q3

REPORT INFORMATION
  Report Type: Report from Study
  Country: ES (occurrence: ES)
  Receive Date: 20130606
  Receipt Date: 20130726
  Transmission Date: 20140515
  Serious: Yes (Hospitalization)
  Sender: FDA-Public Use
  Company Number: ES-ELI_LILLY_AND_COMPANY-ES201305009211

PATIENT
  Age: 82 Year
  Sex: Female
  Weight: 59.5 kg

DRUGS (12)
  1. TERIPARATIDE [Suspect]
     Indication: OSTEOPOROSIS
     Dosage: 20 UG, QD
     Route: 058
     Dates: start: 20130513
  2. TERIPARATIDE [Suspect]
     Dosage: 20 UG, QD
     Route: 058
     Dates: start: 20130513
  3. HYGROTON [Concomitant]
     Indication: HYPERTENSION
     Dosage: 25 MG, QD
     Route: 048
  4. DIAZEPAM [Concomitant]
     Indication: ANXIETY
     Dosage: 5 MG, BID
     Route: 048
  5. LIPOLAC [Concomitant]
     Indication: EYE DISORDER
     Dosage: UNK, QD
     Route: 047
     Dates: start: 2000
  6. TIMOGEL [Concomitant]
     Indication: EYE DISORDER
     Dosage: UNK, QD
     Route: 047
     Dates: start: 2000
  7. OFT CUSI ANTIEDEMA [Concomitant]
     Indication: EYE DISORDER
     Dosage: UNK, QD
     Route: 047
     Dates: start: 2000
  8. FLUDETEN [Concomitant]
     Indication: PAIN
     Dosage: UNK, BID
     Route: 048
     Dates: start: 201301
  9. FLUDETEN [Concomitant]
     Dosage: 3 DF, QD
  10. MASTICAL D [Concomitant]
     Dosage: UNK, QD
     Route: 048
     Dates: start: 201301
  11. ACREL [Concomitant]
     Dosage: UNK, 2/M
     Route: 048
     Dates: end: 201305
  12. NOOTROPIL [Concomitant]
     Indication: HEAD DISCOMFORT
     Dosage: 1200 MG, EVERY 8 HRS

REACTIONS (5)
  - Dysstasia [Recovered/Resolved]
  - Headache [Unknown]
  - Urinary tract infection [Recovering/Resolving]
  - Pain in extremity [Unknown]
  - Pain in extremity [Not Recovered/Not Resolved]
